FAERS Safety Report 11038340 (Version 3)
Quarter: 2015Q3

REPORT INFORMATION
  Report Type: Spontaneous
  Country: US (occurrence: US)
  Receive Date: 20150416
  Receipt Date: 20150821
  Transmission Date: 20151125
  Serious: Yes (Hospitalization, Other)
  Sender: FDA-Public Use
  Company Number: US-MERCK-1504USA015496

PATIENT
  Sex: Female
  Weight: 101.59 kg

DRUGS (2)
  1. JANUVIA [Suspect]
     Active Substance: SITAGLIPTIN PHOSPHATE
     Indication: TYPE 2 DIABETES MELLITUS
     Dosage: 100 MG, QD
     Route: 048
     Dates: start: 20111208, end: 201304
  2. JANUMET [Suspect]
     Active Substance: METFORMIN HYDROCHLORIDE\SITAGLIPTIN PHOSPHATE
     Indication: TYPE 2 DIABETES MELLITUS
     Dosage: 50/1000 MG, BID
     Route: 048
     Dates: start: 20070723, end: 200803

REACTIONS (22)
  - Metastases to peritoneum [Unknown]
  - Osteoarthritis [Unknown]
  - Pancreatic carcinoma stage IV [Unknown]
  - Dermoid cyst [Unknown]
  - Cholecystectomy [Unknown]
  - Arthralgia [Unknown]
  - Meniscus injury [Unknown]
  - Dermatitis atopic [Unknown]
  - Mucosal inflammation [Unknown]
  - Renal cyst [Unknown]
  - Gastrooesophageal reflux disease [Not Recovered/Not Resolved]
  - Depression [Unknown]
  - Sleep apnoea syndrome [Unknown]
  - Musculoskeletal pain [Unknown]
  - Arthralgia [Unknown]
  - Barrett^s oesophagus [Unknown]
  - Peripheral venous disease [Unknown]
  - Hyperglycaemia [Unknown]
  - Metastases to liver [Unknown]
  - Carpal tunnel syndrome [Unknown]
  - Arthralgia [Unknown]
  - Pancreatitis [Recovered/Resolved]

NARRATIVE: CASE EVENT DATE: 20111230
